FAERS Safety Report 11257957 (Version 6)
Quarter: 2021Q2

REPORT INFORMATION
  Report Type: Other
  Country: BR (occurrence: BR)
  Receive Date: 20150710
  Receipt Date: 20210625
  Transmission Date: 20210716
  Serious: Yes (Other)
  Sender: FDA-Public Use
  Company Number: BR-ROCHE-1499228

PATIENT
  Age: 36 Year
  Sex: Female
  Weight: 90 kg

DRUGS (25)
  1. METHOTREXATE. [Concomitant]
     Active Substance: METHOTREXATE
  2. HYDROCHLOROTHIAZIDE. [Concomitant]
     Active Substance: HYDROCHLOROTHIAZIDE
  3. PURAN [Concomitant]
     Active Substance: LEVOTHYROXINE SODIUM
     Indication: HYPOTHYROIDISM
  4. NITRENDIPINE [Concomitant]
     Active Substance: NITRENDIPINE
     Indication: HYPERTENSION
  5. MABTHERA [Suspect]
     Active Substance: RITUXIMAB
     Indication: RHEUMATOID ARTHRITIS
     Dosage: 1ST CYCLE
     Route: 042
     Dates: start: 20130825
  6. MABTHERA [Suspect]
     Active Substance: RITUXIMAB
     Dosage: 1ST CYCLE
     Route: 042
     Dates: start: 20130908
  7. LEVOFLOXACIN. [Concomitant]
     Active Substance: LEVOFLOXACIN
     Indication: RHEUMATOID ARTHRITIS
  8. ACTEMRA [Suspect]
     Active Substance: TOCILIZUMAB
     Route: 042
     Dates: start: 20160707
  9. MABTHERA [Suspect]
     Active Substance: RITUXIMAB
     Dosage: 2ND CYCLE
     Route: 042
     Dates: start: 20140301
  10. ARAVA [Concomitant]
     Active Substance: LEFLUNOMIDE
     Indication: RHEUMATOID ARTHRITIS
  11. HYDROCHLOROTHIAZIDE. [Concomitant]
     Active Substance: HYDROCHLOROTHIAZIDE
     Indication: HYPERTENSION
  12. PREDNISONE. [Concomitant]
     Active Substance: PREDNISONE
     Indication: RHEUMATOID ARTHRITIS
  13. OMEPRAZOLE. [Concomitant]
     Active Substance: OMEPRAZOLE
  14. MABTHERA [Suspect]
     Active Substance: RITUXIMAB
     Dosage: 3ND CYCLE
     Route: 042
     Dates: start: 201412
  15. HYDROCHLOROTHIAZIDE. [Concomitant]
     Active Substance: HYDROCHLOROTHIAZIDE
     Indication: HYPERTENSION
  16. HYDROCHLOROTHIAZIDE. [Concomitant]
     Active Substance: HYDROCHLOROTHIAZIDE
     Indication: HYPERTENSION
  17. VENZER [Concomitant]
     Indication: HYPERTENSION
  18. ENALAPRIL [Concomitant]
     Active Substance: ENALAPRIL
     Indication: HYPERTENSION
  19. DIPYRONE [Concomitant]
     Active Substance: DIPYRONE
  20. MABTHERA [Suspect]
     Active Substance: RITUXIMAB
     Dosage: 2ND CYCLE
     Route: 042
     Dates: start: 20140315
  21. ACTEMRA [Suspect]
     Active Substance: TOCILIZUMAB
     Indication: RHEUMATOID ARTHRITIS
     Dosage: MOST RECENT DOSE WAS ON 23/FEB/2021
     Route: 042
     Dates: start: 2016
  22. ESCITALOPRAM [Concomitant]
     Active Substance: ESCITALOPRAM OXALATE
  23. ENALAPRIL [Concomitant]
     Active Substance: ENALAPRIL
  24. PREDNISONE. [Concomitant]
     Active Substance: PREDNISONE
  25. PREDNISONE. [Concomitant]
     Active Substance: PREDNISONE

REACTIONS (24)
  - Osteoarthritis [Not Recovered/Not Resolved]
  - Red blood cell sedimentation rate abnormal [Unknown]
  - Arthralgia [Recovering/Resolving]
  - Wound haemorrhage [Recovering/Resolving]
  - Memory impairment [Recovering/Resolving]
  - Thyroid disorder [Unknown]
  - Influenza [Recovered/Resolved]
  - Hypersensitivity [Unknown]
  - Rhinitis [Recovering/Resolving]
  - Hyperthyroidism [Not Recovered/Not Resolved]
  - Drug ineffective [Unknown]
  - Weight loss poor [Unknown]
  - Pain [Recovering/Resolving]
  - COVID-19 [Recovering/Resolving]
  - Immunodeficiency [Recovering/Resolving]
  - Treatment noncompliance [Unknown]
  - C-reactive protein abnormal [Unknown]
  - Therapeutic response decreased [Unknown]
  - Feeling abnormal [Unknown]
  - Hypertension [Not Recovered/Not Resolved]
  - Weight abnormal [Not Recovered/Not Resolved]
  - Secretion discharge [Unknown]
  - Sepsis [Recovering/Resolving]
  - Dermatitis allergic [Recovering/Resolving]

NARRATIVE: CASE EVENT DATE: 20140113
